FAERS Safety Report 10087250 (Version 1)
Quarter: 2014Q2

REPORT INFORMATION
  Report Type: Spontaneous
  Country: IT (occurrence: IT)
  Receive Date: 20140418
  Receipt Date: 20140418
  Transmission Date: 20141212
  Serious: Yes (Other)
  Sender: FDA-Public Use
  Company Number: IT-FRI-1000066594

PATIENT
  Age: 87 Year
  Sex: Female

DRUGS (4)
  1. NEBIVOLOL [Suspect]
     Indication: HYPERTENSION
     Dosage: 5 MG
     Route: 048
     Dates: start: 20130101, end: 20140214
  2. CATAPRESAN TTS [Suspect]
     Indication: HYPERTENSION
     Dosage: 25 MG
     Route: 062
     Dates: start: 20130101, end: 20140214
  3. ESIDREX [Suspect]
     Indication: HYPERTENSION
     Dosage: 25 MG
     Dates: start: 20140211, end: 2014
  4. ESIDREX [Suspect]
     Dosage: DOSE REDUCED (NOS)
     Dates: start: 2014

REACTIONS (3)
  - Drug interaction [Recovered/Resolved]
  - Bradycardia [Recovered/Resolved]
  - Presyncope [Recovered/Resolved]
